FAERS Safety Report 13946532 (Version 9)
Quarter: 2018Q4

REPORT INFORMATION
  Report Type: Report from Study
  Country: DE (occurrence: DE)
  Receive Date: 20170907
  Receipt Date: 20181203
  Transmission Date: 20190204
  Serious: Yes (Death, Other)
  Sender: FDA-Public Use
  Company Number: PHHY2014DE171110

PATIENT
  Age: 52 Year
  Sex: Female
  Weight: 72 kg

DRUGS (2)
  1. SIGNIFOR [Suspect]
     Active Substance: PASIREOTIDE
     Indication: PITUITARY-DEPENDENT CUSHING^S SYNDROME
     Dosage: UNK
     Route: 058
     Dates: start: 20120925, end: 20131030
  2. SIGNIFOR [Suspect]
     Active Substance: PASIREOTIDE
     Indication: PITUITARY TUMOUR BENIGN

REACTIONS (6)
  - Drug ineffective [Unknown]
  - Diabetes mellitus [Recovered/Resolved]
  - Acute leukaemia [Fatal]
  - Infection [Fatal]
  - Palpitations [Unknown]
  - Cardiac death [Fatal]

NARRATIVE: CASE EVENT DATE: 20140210
